FAERS Safety Report 17511734 (Version 1)
Quarter: 2020Q1

REPORT INFORMATION
  Report Type: Spontaneous
  Country: US (occurrence: US)
  Receive Date: 20200306
  Receipt Date: 20200306
  Transmission Date: 20200409
  Serious: No
  Sender: FDA-Public Use
  Company Number: US-BAUSCH-BL-2020-006598

PATIENT
  Age: 46 Year
  Sex: Female

DRUGS (1)
  1. PLENVU [Suspect]
     Active Substance: ASCORBIC ACID\POLYETHYLENE GLYCOL 3350\POTASSIUM CHLORIDE\SODIUM ASCORBATE\SODIUM CHLORIDE\SODIUM SULFATE
     Indication: BOWEL PREPARATION
     Dosage: EVENING AROUND 8 PM, SINGLE
     Route: 048
     Dates: start: 20200226, end: 20200227

REACTIONS (8)
  - Abdominal rigidity [Unknown]
  - Therapeutic product effect incomplete [Unknown]
  - Vomiting [Unknown]
  - Abdominal pain [Recovered/Resolved]
  - Gastric dilatation [Unknown]
  - Therapeutic product effect delayed [Recovered/Resolved]
  - Influenza like illness [Recovered/Resolved]
  - Dyspepsia [Recovered/Resolved]

NARRATIVE: CASE EVENT DATE: 20200226
